FAERS Safety Report 17863754 (Version 3)
Quarter: 2020Q3

REPORT INFORMATION
  Report Type: Report from Study
  Country: CA (occurrence: CA)
  Receive Date: 20200605
  Receipt Date: 20200821
  Transmission Date: 20201103
  Serious: Yes (Hospitalization)
  Sender: FDA-Public Use
  Company Number: CA-ACTELION-A-CH2020-205663

PATIENT
  Age: 69 Year
  Sex: Female
  Weight: 85 kg

DRUGS (12)
  1. OPSUMIT [Suspect]
     Active Substance: MACITENTAN
     Dosage: 10 MG, QD
     Route: 048
     Dates: start: 20200319, end: 20200402
  2. UPTRAVI [Suspect]
     Active Substance: SELEXIPAG
     Dosage: 1200 MCG, QD
     Route: 048
     Dates: start: 20200720, end: 20200802
  3. UPTRAVI [Suspect]
     Active Substance: SELEXIPAG
     Dosage: 1600 MCG, QD
     Route: 048
     Dates: start: 20200803
  4. METHOTREXATE. [Concomitant]
     Active Substance: METHOTREXATE
     Indication: PSORIATIC ARTHROPATHY
     Dosage: UNK
     Route: 048
     Dates: end: 202004
  5. OPSUMIT [Suspect]
     Active Substance: MACITENTAN
     Dosage: 10 MG, QD
     Route: 048
     Dates: start: 20200424
  6. LASIX [Concomitant]
     Active Substance: FUROSEMIDE
     Indication: FLUID OVERLOAD
     Dosage: UNK
     Route: 048
     Dates: start: 20200224, end: 20200513
  7. OPSUMIT [Suspect]
     Active Substance: MACITENTAN
     Indication: PULMONARY ARTERIAL HYPERTENSION
     Dosage: 10 MG, QD
     Route: 048
     Dates: start: 20200303, end: 20200310
  8. UPTRAVI [Suspect]
     Active Substance: SELEXIPAG
     Indication: PULMONARY ARTERIAL HYPERTENSION
     Dosage: 800 MCG, QD
     Route: 048
     Dates: start: 20200706, end: 20200719
  9. LEFLUNOMIDE. [Concomitant]
     Active Substance: LEFLUNOMIDE
     Indication: PSORIATIC ARTHROPATHY
     Dosage: UNK
     Route: 048
     Dates: end: 202004
  10. UPTRAVI [Suspect]
     Active Substance: SELEXIPAG
     Dosage: 400 MCG, QD
     Route: 048
     Dates: start: 20200615, end: 20200705
  11. ADCIRCA [Concomitant]
     Active Substance: TADALAFIL
     Dosage: 40 MG, QD
     Dates: start: 20200428
  12. REVATIO [Concomitant]
     Active Substance: SILDENAFIL CITRATE
     Dosage: 60 MG, QD
     Dates: start: 20200418, end: 20200427

REACTIONS (8)
  - Malaise [Unknown]
  - Haemoglobin decreased [Recovering/Resolving]
  - Epistaxis [Unknown]
  - Thrombocytopenia [Recovering/Resolving]
  - Lacrimation increased [Not Recovered/Not Resolved]
  - Bicytopenia [Recovering/Resolving]
  - Dyspnoea [Unknown]
  - Eyelid oedema [Not Recovered/Not Resolved]

NARRATIVE: CASE EVENT DATE: 20200310
